FAERS Safety Report 24185059 (Version 1)
Quarter: 2024Q3

REPORT INFORMATION
  Report Type: Spontaneous
  Country: US (occurrence: US)
  Receive Date: 20240807
  Receipt Date: 20240807
  Transmission Date: 20241016
  Serious: Yes (Death, Life-Threatening, Other)
  Sender: BAXTER
  Company Number: US-BAXTER-2024BAX022488

PATIENT
  Age: 57 Year
  Sex: Female
  Weight: 85.9 kg

DRUGS (6)
  1. DOXORUBICIN [Suspect]
     Active Substance: DOXORUBICIN
     Indication: Philadelphia chromosome negative
     Dosage: 50 MG/M2 CYCLIC (CYCLE 1, 3, 5, 7, DAY 4), (TOTAL DOSE: 94MG) (ONGOING)
     Route: 042
     Dates: start: 20230710
  2. DOXORUBICIN [Suspect]
     Active Substance: DOXORUBICIN
     Indication: Acute lymphocytic leukaemia
  3. CYCLOPHOSPHAMIDE [Suspect]
     Active Substance: CYCLOPHOSPHAMIDE
     Indication: Philadelphia chromosome negative
     Dosage: 300 MG/M2 CYCLIC (CYLCE 1, 3, 5, 7, EVERY 12 HRS X 5 DOSES, DAYS 1-3) (TOTAL DOSE :2240 MG) (ONGOING
     Route: 042
     Dates: start: 20230707
  4. CYCLOPHOSPHAMIDE [Suspect]
     Active Substance: CYCLOPHOSPHAMIDE
     Indication: Acute lymphocytic leukaemia
  5. VINCRISTINE SULFATE [Suspect]
     Active Substance: VINCRISTINE SULFATE
     Indication: Philadelphia chromosome negative
     Dosage: 2 MG CYCLIC (CYLCE 1, 3, 5, 7, DAY 1, DAY 8) (TOTAL DOSE:2 MG) (ONGOING)
     Route: 042
     Dates: start: 20230710
  6. VINCRISTINE SULFATE [Suspect]
     Active Substance: VINCRISTINE SULFATE
     Indication: Acute lymphocytic leukaemia

REACTIONS (11)
  - Pneumonia [Fatal]
  - Respiratory failure [Not Recovered/Not Resolved]
  - Haemorrhage intracranial [Unknown]
  - Liver abscess [Unknown]
  - Febrile neutropenia [Unknown]
  - Lethargy [Unknown]
  - Oedema [Unknown]
  - Fungal infection [Unknown]
  - Pleural effusion [Unknown]
  - Hypotension [Unknown]
  - Tachycardia [Unknown]

NARRATIVE: CASE EVENT DATE: 20230718
